FAERS Safety Report 4880842-9 (Version None)
Quarter: 2005Q4

REPORT INFORMATION
  Report Type: 
  Country: None (occurrence: None)
  Receive Date: 20051223
  Receipt Date: 20051108
  Transmission Date: 20060501
  Serious: No
  Sender: FDA-Public Use
  Company Number: 05P-163-0316679-00

PATIENT
  Age: 74 Year
  Sex: Male
  Weight: 95.2554 kg

DRUGS (13)
  1. HUMIRA [Suspect]
     Indication: RHEUMATOID ARTHRITIS
     Dosage: 40 MG, 2 IN 1 WK, SUBCUTANEOUS
     Route: 058
     Dates: start: 20050927
  2. ZOCOR [Concomitant]
  3. CLOPIDOGREL BISULFATE [Concomitant]
  4. SULINDAC [Concomitant]
  5. GLUCOSAMINE [Concomitant]
  6. ONCOVITE [Concomitant]
  7. GABAPENTIN [Concomitant]
  8. PREDNISONE [Concomitant]
  9. POTASSIUM [Concomitant]
  10. MAGNESIUM [Concomitant]
  11. ASPIRIN [Concomitant]
  12. FUROSEMIDE [Concomitant]
  13. VALSARTAN [Concomitant]

REACTIONS (3)
  - DRUG INEFFECTIVE [None]
  - JOINT STIFFNESS [None]
  - NASOPHARYNGITIS [None]
